FAERS Safety Report 6327931-X (Version None)
Quarter: 2009Q3

REPORT INFORMATION
  Report Type: 
  Country: None (occurrence: None)
  Receive Date: 20090824
  Receipt Date: 20090812
  Transmission Date: 20100115
  Serious: Yes (Other)
  Sender: FDA-Public Use
  Company Number: WAES 0908FRA00022

PATIENT
  Sex: Male

DRUGS (3)
  1. ISENTRESS [Suspect]
     Indication: HIV INFECTION
     Dosage: 1 TAB/DAILY PO
     Route: 048
     Dates: start: 20070501
  2. TAB TMC-125 (ETRAVIRINE) [Suspect]
     Indication: HIV INFECTION
     Dosage: 2 TAB/BID PO
     Route: 048
     Dates: start: 20070501
  3. EMTRICITABINE (+) TENOFOVIR DISOPROXIL F [Concomitant]

REACTIONS (1)
  - CYTOLYTIC HEPATITIS [None]
